FAERS Safety Report 5983997-8 (Version None)
Quarter: 2008Q4

REPORT INFORMATION
  Report Type: 
  Country: None (occurrence: None)
  Receive Date: 20081208
  Receipt Date: 20081202
  Transmission Date: 20090506
  Serious: Yes (Other)
  Sender: FDA-Public Use
  Company Number: BR-ASTRAZENECA-2008UW21407

PATIENT
  Age: 30 Year
  Sex: Male
  Weight: 90 kg

DRUGS (3)
  1. SEROQUEL [Suspect]
     Indication: MANIA
     Route: 048
     Dates: start: 20080801, end: 20080812
  2. DAFORIN [Concomitant]
     Route: 048
     Dates: start: 20070729
  3. LEXOTAN [Concomitant]
     Route: 048
     Dates: start: 20070729

REACTIONS (3)
  - FALL [None]
  - SYNCOPE [None]
  - UPPER LIMB FRACTURE [None]
